FAERS Safety Report 17723610 (Version 1)
Quarter: 2020Q2

REPORT INFORMATION
  Report Type: Spontaneous
  Country: US (occurrence: US)
  Receive Date: 20200429
  Receipt Date: 20200429
  Transmission Date: 20200714
  Serious: Yes (Hospitalization)
  Sender: FDA-Public Use
  Company Number: None

PATIENT
  Age: 67 Year
  Sex: Male

DRUGS (3)
  1. FOLIC ACID TAB [Concomitant]
  2. ENBREL [Suspect]
     Active Substance: ETANERCEPT
     Indication: RHEUMATOID ARTHRITIS
     Dosage: ?          OTHER FREQUENCY:WEEKLY;?
     Route: 058
     Dates: start: 20191220
  3. METHOTREXATE INJECTION [Concomitant]
     Active Substance: METHOTREXATE

REACTIONS (2)
  - Pneumonia viral [None]
  - Therapy interrupted [None]

NARRATIVE: CASE EVENT DATE: 20200413
